FAERS Safety Report 4526999-0 (Version None)
Quarter: 2004Q4

REPORT INFORMATION
  Report Type: 
  Country: None (occurrence: None)
  Receive Date: 20041201
  Receipt Date: 20040819
  Transmission Date: 20050328
  Serious: No
  Sender: FDA-Public Use
  Company Number: MPS1-10277

PATIENT
  Age: 5 Year
  Sex: Male
  Weight: 14.3 kg

DRUGS (4)
  1. ALDURAZYME [Suspect]
     Indication: MUCOPOLYSACCHARIDOSIS I
     Dosage: 8.7 MG IV
     Route: 042
     Dates: start: 20030601
  2. BENADRYL [Concomitant]
  3. HYDROCORTISONE [Concomitant]
  4. ACETAMINOPHEN [Concomitant]

REACTIONS (2)
  - TONGUE OEDEMA [None]
  - URTICARIA [None]
